FAERS Safety Report 4700680-7 (Version None)
Quarter: 2005Q2

REPORT INFORMATION
  Report Type: 
  Country: None (occurrence: None)
  Receive Date: 20050627
  Receipt Date: 20050311
  Transmission Date: 20051028
  Serious: Yes (Hospitalization)
  Sender: FDA-Public Use
  Company Number: US-MERCK-0503USA02696

PATIENT
  Age: 51 Year
  Sex: Male
  Weight: 109 kg

DRUGS (8)
  1. VIOXX [Suspect]
     Indication: POLYARTHRITIS
     Route: 048
     Dates: start: 20010701, end: 20021226
  2. ZYRTEC [Concomitant]
     Route: 065
  3. NASACORT [Concomitant]
     Route: 065
  4. [THERAPY UNSPECIFIED] [Concomitant]
     Route: 065
  5. MOTRIN [Concomitant]
     Route: 048
     Dates: start: 20000101, end: 20010101
  6. CIPRO [Concomitant]
     Route: 065
  7. DIFLUCAN [Concomitant]
     Route: 065
  8. NAPROXEN [Concomitant]
     Route: 048
     Dates: start: 20001211

REACTIONS (9)
  - CEREBROVASCULAR ACCIDENT [None]
  - DIPLOPIA [None]
  - HEMIPARESIS [None]
  - HYPERTENSION [None]
  - HYPOAESTHESIA ORAL [None]
  - NAUSEA [None]
  - SIALOADENITIS [None]
  - VERTIGO [None]
  - VOMITING [None]
